FAERS Safety Report 16842519 (Version 4)
Quarter: 2019Q4

REPORT INFORMATION
  Report Type: Spontaneous
  Country: US (occurrence: US)
  Receive Date: 20190924
  Receipt Date: 20191022
  Transmission Date: 20200122
  Serious: No
  Sender: FDA-Public Use
  Company Number: US-UNITED THERAPEUTICS-UNT-2019-015259

PATIENT
  Sex: Female
  Weight: 89.8 kg

DRUGS (2)
  1. REMODULIN [Suspect]
     Active Substance: TREPROSTINIL
     Indication: PULMONARY ARTERIAL HYPERTENSION
     Dosage: 0.014 ?G/KG, CONTINUING
     Route: 058
     Dates: start: 20190812
  2. REMODULIN [Suspect]
     Active Substance: TREPROSTINIL
     Dosage: 0.020 ?G/KG, CONTINUING
     Route: 058

REACTIONS (5)
  - Skin striae [Unknown]
  - Infusion site erythema [Not Recovered/Not Resolved]
  - Infusion site rash [Recovered/Resolved]
  - Infusion site swelling [Not Recovered/Not Resolved]
  - Infusion site pain [Not Recovered/Not Resolved]

NARRATIVE: CASE EVENT DATE: 2019
